FAERS Safety Report 7738023-7 (Version None)
Quarter: 2011Q3

REPORT INFORMATION
  Report Type: 
  Country: None (occurrence: None)
  Receive Date: 20110908
  Receipt Date: 20110830
  Transmission Date: 20111222
  Serious: Yes (Other)
  Sender: FDA-Public Use
  Company Number: US-BAYER-2011-083097

PATIENT
  Age: 17 Year
  Sex: Female

DRUGS (5)
  1. DROSPIRENONE AND ETHINYL ESTRADIOL [Suspect]
     Indication: PRODUCT USED FOR UNKNOWN INDICATION
     Dosage: UNK
     Dates: start: 20080101, end: 20100101
  2. YASMIN [Suspect]
     Indication: PRODUCT USED FOR UNKNOWN INDICATION
     Dosage: UNK
     Dates: start: 20080101, end: 20100101
  3. MULTI-VITAMINS [Concomitant]
     Route: 048
  4. YAZ [Suspect]
     Indication: PRODUCT USED FOR UNKNOWN INDICATION
     Dosage: UNK
     Dates: start: 20080101, end: 20100101
  5. NEXIUM [Concomitant]
     Dosage: UNK
     Route: 048
     Dates: start: 20010101, end: 20110101

REACTIONS (2)
  - CHOLECYSTITIS CHRONIC [None]
  - CHOLECYSTECTOMY [None]
